FAERS Safety Report 9206590 (Version 2)
Quarter: 2013Q4

REPORT INFORMATION
  Report Type: Spontaneous
  Country: US (occurrence: US)
  Receive Date: 20130403
  Receipt Date: 20131210
  Transmission Date: 20140711
  Serious: Yes (Other)
  Sender: FDA-Public Use
  Company Number: US-BAYER-2013-040108

PATIENT
  Age: 23 Year
  Sex: Female

DRUGS (3)
  1. YASMIN [Suspect]
     Dosage: UNK
     Dates: start: 200903, end: 201112
  2. YAZ [Suspect]
     Dosage: UNK
     Dates: start: 200903, end: 201112
  3. MORPHINE [Concomitant]
     Dosage: UNK

REACTIONS (7)
  - Cholelithiasis [None]
  - Cholecystitis acute [None]
  - Injury [None]
  - Pain [None]
  - Emotional distress [None]
  - Anxiety [None]
  - Psychological trauma [None]
